FAERS Safety Report 19626265 (Version 1)
Quarter: 2021Q3

REPORT INFORMATION
  Report Type: Spontaneous
  Country: US (occurrence: US)
  Receive Date: 20210728
  Receipt Date: 20210728
  Transmission Date: 20211014
  Serious: Yes (Hospitalization)
  Sender: FDA-Public Use
  Company Number: None

PATIENT
  Sex: Female

DRUGS (5)
  1. PREDNISONE. [Concomitant]
     Active Substance: PREDNISONE
  2. ONDANSETRON [Concomitant]
     Active Substance: ONDANSETRON
  3. HUMIRA [Suspect]
     Active Substance: ADALIMUMAB
     Indication: OLIGOMENORRHOEA
     Route: 058
     Dates: start: 20191106
  4. METRONIDAZOL [Concomitant]
     Active Substance: METRONIDAZOLE
  5. CIPROFLOXACN [Concomitant]
     Active Substance: CIPROFLOXACIN

REACTIONS (3)
  - COVID-19 [None]
  - Condition aggravated [None]
  - Upper respiratory tract infection [None]
